FAERS Safety Report 9818681 (Version 1)
Quarter: 2014Q1

REPORT INFORMATION
  Report Type: Spontaneous
  Country: US (occurrence: US)
  Receive Date: 20140115
  Receipt Date: 20140115
  Transmission Date: 20141002
  Serious: No
  Sender: FDA-Public Use
  Company Number: US-BAXTER-2014BAX001092

PATIENT
  Age: 20 Month
  Sex: Male

DRUGS (2)
  1. ADVATE [Suspect]
     Indication: HAEMOPHILIA
     Route: 042
     Dates: start: 20140107, end: 20140107
  2. ADVATE [Suspect]
     Indication: HAEMATOMA

REACTIONS (2)
  - Expired drug administered [Recovered/Resolved]
  - No adverse event [Recovered/Resolved]
